FAERS Safety Report 6994090-X (Version None)
Quarter: 2010Q3

REPORT INFORMATION
  Report Type: 
  Country: None (occurrence: None)
  Receive Date: 20100917
  Receipt Date: 20070724
  Transmission Date: 20110219
  Serious: Yes (Hospitalization, Other)
  Sender: FDA-Public Use
  Company Number: US-ASTRAZENECA-2007UW09718

PATIENT
  Age: 16077 Day
  Sex: Female
  Weight: 66.2 kg

DRUGS (14)
  1. SEROQUEL [Suspect]
     Indication: DEPRESSION
     Dosage: 300 MG HALF TABLET IN THE MORNING, TWO TABS AT NIGHT
     Route: 048
     Dates: start: 20020806
  2. SEROQUEL [Suspect]
     Dates: start: 20030101, end: 20070208
  3. TRAZODONE HCL [Concomitant]
     Dates: start: 20060410
  4. KLONOPIN [Concomitant]
     Dates: start: 20060917
  5. PREMARIN [Concomitant]
     Dates: start: 20060410
  6. PRILOSEC [Concomitant]
     Dates: start: 20060917
  7. PROZAC [Concomitant]
     Dates: start: 20060410
  8. SYNTHROID [Concomitant]
     Dosage: 112 MCG TO 175 MCG
     Dates: start: 20060917
  9. LORTAB [Concomitant]
     Indication: PAIN
     Dosage: AS NEEDED
     Dates: start: 20060917
  10. PAXIL [Concomitant]
     Dates: start: 20061114
  11. FIORICET [Concomitant]
     Indication: MIGRAINE
     Dosage: ONE OR TWO TABLETS EVERY FOUR HOURS AS NEEDED
     Dates: start: 20061114
  12. REGLAN [Concomitant]
     Dates: start: 20061114
  13. REMERON [Concomitant]
     Route: 048
     Dates: start: 20020806
  14. CARBAMAZEPINE [Concomitant]
     Dosage: 200 MG TAKE TWO TABLETS BY MOUTH TWICE A DAY
     Dates: start: 20020806

REACTIONS (4)
  - PANCREATITIS [None]
  - PANCREATITIS ACUTE [None]
  - PANCREATITIS CHRONIC [None]
  - PANCREATITIS RELAPSING [None]
